FAERS Safety Report 9812985 (Version 2)
Quarter: 2014Q1

REPORT INFORMATION
  Report Type: Spontaneous
  Country: JP (occurrence: None)
  Receive Date: 20140108
  Receipt Date: 20140207
  Transmission Date: 20141002
  Serious: Yes (Death, Other)
  Sender: FDA-Public Use
  Company Number: JP-014177

PATIENT
  Age: 71 Year
  Sex: Male

DRUGS (8)
  1. DEGARELIX (GONAX) 80 MG [Suspect]
     Indication: PROSTATE CANCER
     Dosage: 1X/4 WEEKS
     Route: 058
     Dates: start: 20130725, end: 20131218
  2. BICALUTAMIDE (BICALUTAMIDE) 80 MG [Suspect]
     Indication: PRODUCT USED FOR UNKNOWN INDICATION
     Route: 048
     Dates: start: 20130724, end: 20131218
  3. TRAMADOL + ACTAMINOFEN MK [Suspect]
     Indication: PRODUCT USED FOR UNKNOWN INDICATION
     Route: 048
     Dates: start: 20130803, end: 20131209
  4. ZOMETA [Suspect]
     Indication: PRODUCT USED FOR UNKNOWN INDICATION
     Dosage: REGIMEN#1
  5. RECOMODULIN [Suspect]
     Indication: PRODUCT USED FOR UNKNOWN INDICATION
     Dosage: REGIMEN #1
     Route: 042
     Dates: start: 20131210, end: 20131218
  6. ZOLEDRONIC ACID (ZOLEDRONIC ACID) 4 MG [Suspect]
     Route: 042
     Dates: start: 20130919, end: 20131218
  7. DEXAMETHASONE [Concomitant]
  8. OXYCODONE HYDROCHLORIDE [Concomitant]

REACTIONS (3)
  - Hepatic function abnormal [None]
  - Cerebral haemorrhage [None]
  - Intentional drug misuse [None]
